FAERS Safety Report 9226445 (Version 2)
Quarter: 2013Q2

REPORT INFORMATION
  Report Type: Spontaneous
  Country: BG (occurrence: BG)
  Receive Date: 20130411
  Receipt Date: 20130428
  Transmission Date: 20140414
  Serious: No
  Sender: FDA-Public Use
  Company Number: BG-AMGEN-BGRSP2013024757

PATIENT
  Sex: Female

DRUGS (1)
  1. VECTIBIX [Suspect]
     Indication: COLORECTAL CANCER METASTATIC
     Dosage: UNK

REACTIONS (2)
  - Transaminases increased [Recovered/Resolved]
  - Blood bilirubin increased [Unknown]
